FAERS Safety Report 7624104-5 (Version None)
Quarter: 2011Q3

REPORT INFORMATION
  Report Type: 
  Country: None (occurrence: None)
  Receive Date: 20110720
  Receipt Date: 20110713
  Transmission Date: 20111222
  Serious: Yes (Hospitalization)
  Sender: FDA-Public Use
  Company Number: US-NOVOPROD-331755

PATIENT
  Sex: Male
  Weight: 113.38 kg

DRUGS (3)
  1. NOVOLOG [Suspect]
     Indication: TYPE 1 DIABETES MELLITUS
     Dosage: 2.5 U, PER HOUR
     Route: 058
  2. NOVOLOG [Suspect]
     Indication: TYPE 1 DIABETES MELLITUS
     Dosage: SLIDING SCALE
     Route: 058
  3. TRAMADOL HCL [Suspect]
     Indication: BACK INJURY
     Dosage: UNK
     Dates: end: 20110303

REACTIONS (2)
  - CONVULSION [None]
  - RASH [None]
